FAERS Safety Report 25473982 (Version 4)
Quarter: 2025Q4

REPORT INFORMATION
  Report Type: Report from Study
  Country: US (occurrence: US)
  Receive Date: 20250624
  Receipt Date: 20251202
  Transmission Date: 20260118
  Serious: Yes (Other)
  Sender: MALLINCKRODT
  Company Number: US-MALLINCKRODT-MNK202503816

PATIENT
  Age: 78 Year
  Sex: Female

DRUGS (1)
  1. CORTICOTROPIN [Suspect]
     Active Substance: CORTICOTROPIN
     Indication: Keratitis
     Route: 058
     Dates: start: 20250517, end: 20250801

REACTIONS (11)
  - Blood glucose increased [Unknown]
  - Anxiety [Unknown]
  - Tremor [Unknown]
  - Feeling abnormal [Unknown]
  - Injection site discolouration [Unknown]
  - Headache [Unknown]
  - Malaise [Unknown]
  - Insomnia [Unknown]
  - Palpitations [Unknown]
  - Asthenia [Unknown]
  - Fatigue [Unknown]

NARRATIVE: CASE EVENT DATE: 20250101
